FAERS Safety Report 4872109-X (Version None)
Quarter: 2005Q4

REPORT INFORMATION
  Report Type: 
  Country: None (occurrence: None)
  Receive Date: 20051230
  Receipt Date: 20051216
  Transmission Date: 20060501
  Serious: No
  Sender: FDA-Public Use
  Company Number: TPA2005A01689

PATIENT
  Age: 77 Year
  Sex: Male
  Weight: 127.0072 kg

DRUGS (1)
  1. ACTOS [Suspect]
     Dosage: 30 MG, PER ORAL
     Route: 048

REACTIONS (1)
  - POOR QUALITY DRUG ADMINISTERED [None]
